FAERS Safety Report 5450308-6 (Version None)
Quarter: 2007Q3

REPORT INFORMATION
  Report Type: 
  Country: None (occurrence: None)
  Receive Date: 20070912
  Receipt Date: 20070910
  Transmission Date: 20080115
  Serious: Yes (Other)
  Sender: FDA-Public Use
  Company Number: DE-ASTRAZENECA-2007PK01862

PATIENT
  Age: 30 Year
  Sex: Female
  Weight: 50 kg

DRUGS (5)
  1. PROPOFOL [Suspect]
     Indication: ANAESTHESIA
     Route: 042
  2. MIDAZOLAM HCL [Concomitant]
     Indication: ANAESTHESIA
     Route: 048
  3. FENTANYL [Concomitant]
     Indication: ANAESTHESIA
  4. ISOFLURAN [Concomitant]
     Indication: ANAESTHESIA
  5. CLONIDIN [Concomitant]
     Indication: HYPERTENSION

REACTIONS (1)
  - STUPOR [None]
